FAERS Safety Report 7941745 (Version 3)
Quarter: 2012Q4

REPORT INFORMATION
  Report Type: 
  Country: US (occurrence: None)
  Receive Date: 20110422
  Receipt Date: 20120912
  Transmission Date: 20130627
  Serious: Yes (Hospitalization, Other)
  Sender: FDA-Public Use
  Company Number: 2011AP000710

PATIENT
  Age: 82 Year
  Sex: Female

DRUGS (16)
  1. AMIODARONE HYDROCHLORIDE [Suspect]
     Indication: ATRIAL FIBRILLATION
     Dosage: 200 MG; QD;
  2. AMITRIPTYLINE HYDROCHLORIDE [Suspect]
     Indication: INSOMNIA
     Dosage: 50 MG; QD;
  3. ALENDRONATE SODIUM [Concomitant]
  4. ASPIRIN [Concomitant]
  5. BUMETANIDE [Concomitant]
  6. CALCITRIOL [Concomitant]
  7. CHOLECALCIFEROL [Concomitant]
  8. CYANOCOBALAMIN [Concomitant]
  9. LIDOCAINE [Concomitant]
  10. FERROUS SULFATE [Concomitant]
  11. PANTOPRAZOLE [Concomitant]
  12. SIMVASTATIN [Concomitant]
  13. TIAGABINE HYDROCHLORIDE [Concomitant]
  14. TIZANIDINE HYDROCHLORIDE [Concomitant]
  15. TOLTERODINE TARTRATE [Concomitant]
  16. OXYCODONE HYDROCHLORIDE [Concomitant]

REACTIONS (15)
  - Extrapyramidal disorder [None]
  - Toxicity to various agents [None]
  - Drug interaction [None]
  - Dehydration [None]
  - Dyskinesia [None]
  - Haemoglobin decreased [None]
  - Blood urea increased [None]
  - Blood creatine increased [None]
  - Insomnia [None]
  - Dysarthria [None]
  - Cerebellar syndrome [None]
  - Perseveration [None]
  - Tremor [None]
  - Dry mouth [None]
  - Dyskinesia [None]
